FAERS Safety Report 10233624 (Version 3)
Quarter: 2015Q1

REPORT INFORMATION
  Report Type: Spontaneous
  Country: US (occurrence: US)
  Receive Date: 20140612
  Receipt Date: 20150225
  Transmission Date: 20150720
  Serious: Yes (Hospitalization)
  Sender: FDA-Public Use
  Company Number: US-BAYER-2014-086593

PATIENT
  Age: 25 Year
  Sex: Female
  Weight: 49.89 kg

DRUGS (2)
  1. MIRENA [Suspect]
     Active Substance: LEVONORGESTREL
     Indication: CONTRACEPTION
     Dosage: 20 MCG/24HR, CONT
     Route: 015
     Dates: start: 20110407, end: 20120722
  2. MIRENA [Suspect]
     Active Substance: LEVONORGESTREL
     Indication: CONTRACEPTION
     Dosage: 20 MCG/24HR, CONT
     Route: 015
     Dates: start: 201208

REACTIONS (19)
  - Dyspareunia [None]
  - Abdominal pain lower [None]
  - Muscular weakness [Not Recovered/Not Resolved]
  - Procedural pain [Not Recovered/Not Resolved]
  - Uterine perforation [None]
  - Scar [None]
  - Procedural pain [None]
  - Abdominal adhesions [None]
  - Gait disturbance [None]
  - Infertility female [None]
  - Pelvic pain [None]
  - Off label use [None]
  - Procedural pain [Not Recovered/Not Resolved]
  - Back pain [Not Recovered/Not Resolved]
  - Fear [None]
  - Anxiety [None]
  - Large intestine perforation [None]
  - Injury [None]
  - Depressed mood [None]

NARRATIVE: CASE EVENT DATE: 2011
